FAERS Safety Report 5585396-X (Version None)
Quarter: 2008Q1

REPORT INFORMATION
  Report Type: 
  Country: None (occurrence: None)
  Receive Date: 20080109
  Receipt Date: 20071228
  Transmission Date: 20080703
  Serious: Yes (Congenital Anomaly)
  Sender: FDA-Public Use
  Company Number: GB-ROCHE-536628

PATIENT
  Sex: Female

DRUGS (5)
  1. ROACCUTANE [Suspect]
     Indication: ACNE
     Dates: start: 19980313, end: 19980801
  2. MICROGYNON 30 [Concomitant]
     Indication: CONTRACEPTION
     Dosage: DOSE: 1-21
     Dates: start: 19950101, end: 20010405
  3. ERYTHROMYCIN [Concomitant]
     Indication: PHARYNGITIS STREPTOCOCCAL
     Dates: start: 19991207, end: 19991214
  4. MEBEVERINE [Concomitant]
     Dosage: ILLEGIBLE DOSE
     Dates: start: 19990622
  5. CYCLOGEST [Concomitant]
     Indication: INFERTILITY
     Dosage: DRUG:CYCLOGEST PESSARY; ROUTE:PESSARY; ILLEGIBLE DOSE
     Dates: start: 20041108

REACTIONS (1)
  - CLEFT PALATE [None]
